FAERS Safety Report 24333217 (Version 1)
Quarter: 2024Q3

REPORT INFORMATION
  Report Type: Spontaneous
  Country: US (occurrence: US)
  Receive Date: 20240918
  Receipt Date: 20240918
  Transmission Date: 20241017
  Serious: No
  Sender: GLAXOSMITHKLINE
  Company Number: US-GSK-US2024111779

PATIENT
  Sex: Female

DRUGS (1)
  1. NUCALA [Suspect]
     Active Substance: MEPOLIZUMAB
     Indication: Asthma
     Dosage: UNK

REACTIONS (4)
  - Wrong technique in device usage process [Unknown]
  - Accidental exposure to product [Unknown]
  - Product administered at inappropriate site [Unknown]
  - Incorrect dose administered [Unknown]
